FAERS Safety Report 15701416 (Version 1)
Quarter: 2018Q4

REPORT INFORMATION
  Report Type: Spontaneous
  Country: GB (occurrence: GB)
  Receive Date: 20181207
  Receipt Date: 20181207
  Transmission Date: 20190205
  Serious: Yes (Hospitalization, Other)
  Sender: FDA-Public Use
  Company Number: GB-TEVA-2018-GB-983363

PATIENT
  Age: 86 Year
  Sex: Female

DRUGS (15)
  1. LEVOTHYROXINE. [Concomitant]
     Active Substance: LEVOTHYROXINE
  2. SYMBICORT [Concomitant]
     Active Substance: BUDESONIDE\FORMOTEROL FUMARATE DIHYDRATE
     Dosage: 200/6
  3. TRAMADOL. [Concomitant]
     Active Substance: TRAMADOL
  4. ADCAL-D3 [Concomitant]
     Active Substance: CALCIUM CARBONATE\CHOLECALCIFEROL
  5. PREGABALIN. [Concomitant]
     Active Substance: PREGABALIN
  6. MACROGOL [Concomitant]
     Active Substance: POLYETHYLENE GLYCOLS
  7. DILTIAZEM. [Suspect]
     Active Substance: DILTIAZEM
     Dosage: 200 MILLIGRAM DAILY;
     Route: 065
  8. LANSOPRAZOLE. [Concomitant]
     Active Substance: LANSOPRAZOLE
  9. FERROUS FUMARATE [Concomitant]
     Active Substance: FERROUS FUMARATE
  10. IRBESARTAN. [Concomitant]
     Active Substance: IRBESARTAN
  11. SIMVASTATIN. [Concomitant]
     Active Substance: SIMVASTATIN
  12. AZITHROMYCIN ANHYDROUS. [Concomitant]
     Active Substance: AZITHROMYCIN ANHYDROUS
  13. PIROXICAM. [Concomitant]
     Active Substance: PIROXICAM
  14. SALBUTAMOL [Concomitant]
     Active Substance: ALBUTEROL
  15. ACETYLSALICYLIC ACID [Concomitant]
     Active Substance: ASPIRIN

REACTIONS (4)
  - Gastrointestinal stoma output decreased [Unknown]
  - Vomiting [Unknown]
  - Abdominal pain [Unknown]
  - Intestinal obstruction [Recovered/Resolved with Sequelae]
